FAERS Safety Report 23558524 (Version 1)
Quarter: 2024Q1

REPORT INFORMATION
  Report Type: Report from Study
  Country: US (occurrence: US)
  Receive Date: 20240223
  Receipt Date: 20240223
  Transmission Date: 20240410
  Serious: Yes (Other)
  Sender: FDA-Public Use
  Company Number: US-SUN PHARMACEUTICAL INDUSTRIES LTD-2024R1-432954

PATIENT
  Age: 64 Year
  Sex: Female

DRUGS (11)
  1. CHOLECALCIFEROL [Suspect]
     Active Substance: CHOLECALCIFEROL
     Indication: Supplementation therapy
     Dosage: UNK
     Route: 065
  2. ESTRADIOL [Suspect]
     Active Substance: ESTRADIOL
     Indication: Menopause
     Dosage: UNK
     Route: 065
  3. ESTRADIOL [Suspect]
     Active Substance: ESTRADIOL
     Indication: Hormone replacement therapy
  4. PROGESTERONE [Suspect]
     Active Substance: PROGESTERONE
     Indication: Menopause
     Dosage: UNK
     Route: 065
  5. PROGESTERONE [Suspect]
     Active Substance: PROGESTERONE
     Indication: Hormone replacement therapy
  6. TESTOSTERONE [Suspect]
     Active Substance: TESTOSTERONE
     Indication: Menopause
     Dosage: UNK
     Route: 065
  7. TESTOSTERONE [Suspect]
     Active Substance: TESTOSTERONE
     Indication: Hormone replacement therapy
  8. PRASTERONE [Suspect]
     Active Substance: PRASTERONE
     Indication: Supplementation therapy
     Dosage: UNK
     Route: 065
  9. DIETARY SUPPLEMENT [Suspect]
     Active Substance: DIETARY SUPPLEMENT
     Indication: Supplementation therapy
     Dosage: UNK
     Route: 065
  10. QUERCETIN [Suspect]
     Active Substance: QUERCETIN
     Indication: Supplementation therapy
     Dosage: UNK
     Route: 065
  11. ZINC [Suspect]
     Active Substance: PYRITHIONE ZINC\ZINC\ZINC CHLORIDE
     Indication: Supplementation therapy
     Dosage: UNK
     Route: 065

REACTIONS (4)
  - Abnormal weight gain [Unknown]
  - Hyperlipidaemia [Unknown]
  - Fatty acid deficiency [Unknown]
  - Red blood cell abnormality [Unknown]
